FAERS Safety Report 18433952 (Version 1)
Quarter: 2020Q4

REPORT INFORMATION
  Report Type: Spontaneous
  Country: FR (occurrence: FR)
  Receive Date: 20201028
  Receipt Date: 20201028
  Transmission Date: 20210114
  Serious: Yes (Hospitalization)
  Sender: FDA-Public Use
  Company Number: FR-TEVA-2020-FR-1841240

PATIENT
  Age: 75 Year
  Sex: Female
  Weight: 75 kg

DRUGS (18)
  1. CARBOSYMAG /01711031/ (CHARCOAL, ACTIVATED, MAGNESIUM OXIDE, SIMETICONE) [Suspect]
     Active Substance: ACTIVATED CHARCOAL\MAGNESIUM OXIDE\SIMETHICONE
     Indication: ABDOMINAL PAIN UPPER
     Dosage: 3 DF
     Route: 048
     Dates: end: 20200908
  2. MONTELUKAST SODIQUE [Concomitant]
     Active Substance: MONTELUKAST SODIUM
  3. CHIBRO CADRON [Concomitant]
     Active Substance: DEXAMETHASONE SODIUM PHOSPHATE\NEOMYCIN SULFATE
  4. MELAXOSE [Suspect]
     Active Substance: LACTULOSE\PARAFFIN
     Indication: CONSTIPATION
     Dosage: 5 ML
     Route: 048
     Dates: start: 2017, end: 20200908
  5. ACIDE FOLIQUE [Concomitant]
     Active Substance: FOLIC ACID
  6. PARACETAMOL [Concomitant]
     Active Substance: ACETAMINOPHEN
  7. FUROSEMIDE. [Concomitant]
     Active Substance: FUROSEMIDE
  8. VISMED [Concomitant]
     Active Substance: HYALURONATE SODIUM
  9. FORMOTEROL DIHYDRATE (FUMARATE DE) [Concomitant]
     Active Substance: FORMOTEROL
  10. OCUFEN [Concomitant]
     Active Substance: FLURBIPROFEN SODIUM
  11. SERESTA [Concomitant]
     Active Substance: OXAZEPAM
  12. TRAMADOL (CHLORHYDRATE DE) [Suspect]
     Active Substance: TRAMADOL HYDROCHLORIDE
     Indication: RHEUMATOID ARTHRITIS
     Dosage: 300 MG
     Route: 048
     Dates: start: 2008, end: 20200908
  13. VITAMINE A [Concomitant]
     Active Substance: RETINOL
  14. PHLOROGLUCINOL (TRIMETHYL ETHER DU) [Suspect]
     Active Substance: 1,3,5-TRIMETHOXYBENZENE
     Indication: PRODUCT USED FOR UNKNOWN INDICATION
     Dosage: 6 DF
     Route: 048
     Dates: end: 20200910
  15. NOVATREX (METHOTREXATE) [Concomitant]
     Active Substance: METHOTREXATE SODIUM
  16. CALCIPRAT 750 MG, COMPRIME A SUCER [Concomitant]
     Active Substance: CALCIUM CARBONATE
  17. BUDESONIDE. [Concomitant]
     Active Substance: BUDESONIDE
  18. CHOLECALCIFEROL [Concomitant]
     Active Substance: CHOLECALCIFEROL

REACTIONS (1)
  - Pancreatitis acute [Recovered/Resolved]

NARRATIVE: CASE EVENT DATE: 20200908
